FAERS Safety Report 9835774 (Version 8)
Quarter: 2018Q1

REPORT INFORMATION
  Report Type: Spontaneous
  Country: JP (occurrence: JP)
  Receive Date: 20140122
  Receipt Date: 20180306
  Transmission Date: 20180509
  Serious: Yes (Life-Threatening, Hospitalization, Other)
  Sender: FDA-Public Use
  Company Number: JP-ABBVIE-13P-087-1138867-00

PATIENT
  Age: 51 Year
  Sex: Male
  Weight: 67 kg

DRUGS (6)
  1. RIFAMPICIN [Suspect]
     Active Substance: RIFAMPIN
     Indication: PERITONEAL TUBERCULOSIS
     Route: 065
  2. HUMIRA [Suspect]
     Active Substance: ADALIMUMAB
     Indication: CROHN^S DISEASE
     Route: 058
     Dates: start: 20130603, end: 20130603
  3. HUMIRA [Suspect]
     Active Substance: ADALIMUMAB
     Route: 058
  4. MESALAZINE [Concomitant]
     Active Substance: MESALAMINE
     Dates: start: 20130422, end: 20130812
  5. HUMIRA [Suspect]
     Active Substance: ADALIMUMAB
     Route: 058
     Dates: start: 20130707, end: 20130812
  6. MESALAZINE [Concomitant]
     Active Substance: MESALAMINE
     Indication: CROHN^S DISEASE
     Route: 048
     Dates: start: 20130330, end: 20130421

REACTIONS (9)
  - Inflammation [Unknown]
  - Pulmonary tuberculosis [Recovering/Resolving]
  - Asthenia [Unknown]
  - Thrombocytopenia [Recovered/Resolved]
  - Brachiocephalic vein thrombosis [Recovered/Resolved]
  - Crohn^s disease [Unknown]
  - Gastrointestinal oedema [Unknown]
  - Peritoneal tuberculosis [Recovering/Resolving]
  - Ascites [Unknown]

NARRATIVE: CASE EVENT DATE: 201307
